FAERS Safety Report 24029055 (Version 5)
Quarter: 2025Q2

REPORT INFORMATION
  Report Type: Spontaneous
  Country: US (occurrence: US)
  Receive Date: 20240628
  Receipt Date: 20250612
  Transmission Date: 20250716
  Serious: No
  Sender: DAIICHI
  Company Number: US-DAIICHI SANKYO, INC.-DSU-2024-124820AA

PATIENT
  Age: 61 Year
  Sex: Female

DRUGS (3)
  1. TURALIO [Suspect]
     Active Substance: PEXIDARTINIB HYDROCHLORIDE
     Indication: Connective tissue neoplasm
     Dosage: 125 MG, BID (2 CAPSULES BY MOUTH TWICE DAILY AM+PM)
     Route: 048
     Dates: start: 20240224
  2. TURALIO [Suspect]
     Active Substance: PEXIDARTINIB HYDROCHLORIDE
     Indication: Soft tissue neoplasm
  3. RABIES VACCINE [Concomitant]
     Active Substance: RABIES VACCINE
     Indication: Rabies immunisation
     Route: 065

REACTIONS (12)
  - Fall [Recovered/Resolved]
  - Back injury [Recovered/Resolved]
  - Limb mass [Not Recovered/Not Resolved]
  - COVID-19 [Not Recovered/Not Resolved]
  - Localised infection [Not Recovered/Not Resolved]
  - Dizziness [Not Recovered/Not Resolved]
  - Vertigo [Not Recovered/Not Resolved]
  - Fatigue [Not Recovered/Not Resolved]
  - Therapy interrupted [Unknown]
  - Product distribution issue [Recovered/Resolved]
  - Diet noncompliance [Recovered/Resolved]
  - Product dose omission issue [Recovered/Resolved]

NARRATIVE: CASE EVENT DATE: 20240501
